FAERS Safety Report 19069567 (Version 1)
Quarter: 2021Q1

REPORT INFORMATION
  Report Type: Spontaneous
  Country: US (occurrence: US)
  Receive Date: 20210329
  Receipt Date: 20210329
  Transmission Date: 20210420
  Serious: No
  Sender: FDA-Public Use
  Company Number: None

PATIENT
  Age: 98 Year
  Sex: Female
  Weight: 61.8 kg

DRUGS (1)
  1. DAPTOMYCIN. [Suspect]
     Active Substance: DAPTOMYCIN
     Indication: CELLULITIS
     Dosage: ?          OTHER FREQUENCY:EVERY 48 HOURS;?
     Route: 042
     Dates: start: 20210310, end: 20210310

REACTIONS (1)
  - Rash [None]

NARRATIVE: CASE EVENT DATE: 20210310
